FAERS Safety Report 5673856-2 (Version None)
Quarter: 2008Q2

REPORT INFORMATION
  Report Type: 
  Country: None (occurrence: None)
  Receive Date: 20080226
  Receipt Date: 20070416
  Transmission Date: 20081010
  Serious: Yes (Other)
  Sender: FDA-Public Use
  Company Number: 474193

PATIENT
  Age: 16 Year
  Sex: Male
  Weight: 61.2 kg

DRUGS (1)
  1. ACCUTANE [Suspect]
     Indication: DRUG USE FOR UNKNOWN INDICATION
     Dosage: 40 MG 1 PER DAY
     Dates: start: 20060904, end: 20060924

REACTIONS (3)
  - DEPRESSION [None]
  - FEELING ABNORMAL [None]
  - MOOD ALTERED [None]
